FAERS Safety Report 7972628-3 (Version None)
Quarter: 2011Q4

REPORT INFORMATION
  Report Type: 
  Country: None (occurrence: None)
  Receive Date: 20111213
  Receipt Date: 20111206
  Transmission Date: 20120403
  Serious: Yes (Life-Threatening, Hospitalization, Other)
  Sender: FDA-Public Use
  Company Number: AU-JNJFOC-20100805745

PATIENT
  Sex: Male

DRUGS (6)
  1. STELARA [Suspect]
     Route: 058
     Dates: start: 20110124
  2. STELARA [Suspect]
     Route: 058
     Dates: start: 20101107
  3. STELARA [Suspect]
     Route: 058
     Dates: start: 20110419
  4. STELARA [Suspect]
     Indication: PSORIASIS
     Route: 058
     Dates: start: 20100717
  5. ANTIBIOTICS NOS [Concomitant]
  6. STELARA [Suspect]
     Route: 058
     Dates: start: 20100814

REACTIONS (6)
  - SEPSIS [None]
  - OSTEOMYELITIS [None]
  - RENAL FAILURE [None]
  - LEG AMPUTATION [None]
  - PAIN IN EXTREMITY [None]
  - CELLULITIS [None]
